FAERS Safety Report 4479089-X (Version None)
Quarter: 2004Q4

REPORT INFORMATION
  Report Type: 
  Country: None (occurrence: None)
  Receive Date: 20040923
  Receipt Date: 20040604
  Transmission Date: 20050328
  Serious: No
  Sender: FDA-Public Use
  Company Number: 206991

PATIENT
  Sex: Male
  Weight: 68.5 kg

DRUGS (2)
  1. AVASTIN [Suspect]
     Indication: COLORECTAL CANCER METASTATIC
     Dosage: 350 MG, INTRAVENOUS
     Route: 042
     Dates: start: 20040521
  2. COUMADIN [Concomitant]

REACTIONS (1)
  - HAEMOPTYSIS [None]
